FAERS Safety Report 6208506-X (Version None)
Quarter: 2009Q2

REPORT INFORMATION
  Report Type: 
  Country: None (occurrence: None)
  Receive Date: 20090529
  Receipt Date: 20090514
  Transmission Date: 20091009
  Serious: Yes (Hospitalization)
  Sender: FDA-Public Use
  Company Number: FR-GENENTECH-282401

PATIENT
  Sex: Female

DRUGS (3)
  1. BEVACIZUMAB [Suspect]
     Indication: COLON CANCER METASTATIC
     Dosage: 5 MG/KG, UNK
     Route: 042
     Dates: start: 20081120
  2. BEVACIZUMAB [Suspect]
     Dosage: UNK
     Dates: start: 20090210
  3. BEVACIZUMAB [Suspect]
     Dosage: UNK
     Route: 042
     Dates: start: 20080930

REACTIONS (1)
  - ARTHRITIS [None]
